FAERS Safety Report 25104175 (Version 1)
Quarter: 2025Q1

REPORT INFORMATION
  Report Type: Spontaneous
  Country: US (occurrence: US)
  Receive Date: 20250321
  Receipt Date: 20250321
  Transmission Date: 20250409
  Serious: Yes (Other)
  Sender: SYNDAX
  Company Number: US-SYNDAX PHARMACEUTICALS, INC.-2025US000274

PATIENT
  Age: 42 Year
  Sex: Female

DRUGS (1)
  1. REVUFORJ [Suspect]
     Active Substance: REVUMENIB CITRATE
     Indication: Acute myeloid leukaemia
     Dosage: 270 MILLIGRAM, DAILY
     Route: 048
     Dates: start: 20241227

REACTIONS (1)
  - Cytopenia [Unknown]
